FAERS Safety Report 10544837 (Version 2)
Quarter: 2015Q1

REPORT INFORMATION
  Report Type: Report from Study
  Country: BR (occurrence: BR)
  Receive Date: 20141027
  Receipt Date: 20150121
  Transmission Date: 20150720
  Serious: Yes (Other)
  Sender: FDA-Public Use
  Company Number: PHHY2014BR139887

PATIENT
  Sex: Female
  Weight: 52 kg

DRUGS (13)
  1. GLIMEPIRIDE. [Concomitant]
     Active Substance: GLIMEPIRIDE
     Indication: DIABETES MELLITUS
     Dosage: 1 DF (1 TABLET), QD
     Route: 048
  2. AAS [Concomitant]
     Active Substance: ASPIRIN
     Indication: COAGULOPATHY
     Dosage: 2 DF (2 TABLETS), QD
     Route: 048
  3. NORTRIPTYLINE [Concomitant]
     Active Substance: NORTRIPTYLINE
     Indication: DEPRESSION
     Dosage: 1 DF (1 TABLET), QD
     Route: 048
  4. AROMASIN [Concomitant]
     Active Substance: EXEMESTANE
     Indication: BREAST CANCER
     Dosage: 1 DF (1 TABLET), QD
     Route: 048
     Dates: end: 201412
  5. BETADINE [Concomitant]
     Active Substance: POVIDONE-IODINE
     Indication: DIZZINESS
     Dosage: 1 DF (1 TABLET), QD
     Route: 048
  6. CRESTOR [Concomitant]
     Active Substance: ROSUVASTATIN CALCIUM
     Indication: HYPERTENSION
     Dosage: 1 DF (1 TABLET), QD
     Route: 065
  7. EXELON PATCH [Suspect]
     Active Substance: RIVASTIGMINE
     Indication: ANGER
     Dosage: 1 DF (1 PATCH 5CM2), QD
     Route: 062
     Dates: start: 201311
  8. METFORMIN [Concomitant]
     Active Substance: METFORMIN HYDROCHLORIDE
     Indication: DIABETES MELLITUS
     Dosage: 2 DF (2 TABLETS), QD
     Route: 048
  9. CONCOR [Concomitant]
     Active Substance: BISOPROLOL FUMARATE
     Indication: CARDIAC DISORDER
     Dosage: 1 DF (1 TABLET), QD
     Route: 048
  10. NAPRIX [Concomitant]
     Active Substance: RAMIPRIL
     Indication: HYPERTENSION
     Dosage: 1 DF (1 TABLET), QD
     Route: 048
  11. EXELON PATCH [Suspect]
     Active Substance: RIVASTIGMINE
     Indication: AGGRESSION
  12. EXELON PATCH [Suspect]
     Active Substance: RIVASTIGMINE
     Indication: APATHY
  13. AAS [Concomitant]
     Active Substance: ASPIRIN
     Indication: ANTICOAGULANT THERAPY

REACTIONS (4)
  - Spinal pain [Recovering/Resolving]
  - Off label use [Unknown]
  - Bone cancer [Not Recovered/Not Resolved]
  - Pain in extremity [Not Recovered/Not Resolved]
